FAERS Safety Report 11579720 (Version 2)
Quarter: 2016Q1

REPORT INFORMATION
  Report Type: Spontaneous
  Country: US (occurrence: US)
  Receive Date: 20150930
  Receipt Date: 20160311
  Transmission Date: 20160525
  Serious: Yes (Disabling, Other)
  Sender: FDA-Public Use
  Company Number: US-PFIZER INC-2015327397

PATIENT
  Age: 53 Year
  Sex: Female

DRUGS (6)
  1. LIPITOR [Suspect]
     Active Substance: ATORVASTATIN CALCIUM
     Dosage: 80 MG, DAILY (PER DAY)
     Route: 048
     Dates: start: 2005, end: 2009
  2. LIPITOR [Suspect]
     Active Substance: ATORVASTATIN CALCIUM
     Indication: BLOOD CHOLESTEROL INCREASED
     Dosage: UNK, AS DIRECTED
     Route: 048
     Dates: start: 20080201, end: 20090101
  3. SKELAXINE (ACETAMINOPHEN\CHLORZOXAZONE) [Concomitant]
     Active Substance: ACETAMINOPHEN\CHLORZOXAZONE
     Indication: SCIATICA
     Dosage: 800 MG, DAILY (PER DAY)
     Dates: start: 2001
  4. NAPROXEN. [Concomitant]
     Active Substance: NAPROXEN
     Indication: PAIN
     Dosage: 1000 MG, DAILY (500 MG TWO PER DAY)
     Dates: start: 2001
  5. NEXIUM [Concomitant]
     Active Substance: ESOMEPRAZOLE MAGNESIUM
     Indication: GASTROOESOPHAGEAL REFLUX DISEASE
     Dosage: 40 MG, DAILY (PER DAY)
     Dates: start: 2001
  6. SYMBYAX [Concomitant]
     Active Substance: FLUOXETINE HYDROCHLORIDE\OLANZAPINE
     Indication: BIPOLAR DISORDER
     Dosage: 6-25 MG, DAILY (PER DAY)
     Dates: start: 2004

REACTIONS (1)
  - Type 2 diabetes mellitus [Not Recovered/Not Resolved]

NARRATIVE: CASE EVENT DATE: 20080531
